FAERS Safety Report 8590828-9 (Version None)
Quarter: 2012Q3

REPORT INFORMATION
  Report Type: 
  Country: None (occurrence: None)
  Receive Date: 20120731
  Receipt Date: 20120717
  Transmission Date: 20120928
  Serious: Yes (Death)
  Sender: FDA-Public Use
  Company Number: 2012SP000921

PATIENT

DRUGS (4)
  1. AMIODARONE HYDROCHLORIDE [Suspect]
     Indication: THERAPEUTIC HYPOTHERMIA
     Dosage: 750 MG;QD;IV
     Route: 042
  2. AMIODARONE HYDROCHLORIDE [Suspect]
     Indication: CARDIO-RESPIRATORY ARREST
     Dosage: 750 MG;QD;IV
     Route: 042
  3. PROPOFOL [Concomitant]
  4. VECURONIUM BROMIDE [Concomitant]

REACTIONS (1)
  - VENTRICULAR FIBRILLATION [None]
